FAERS Safety Report 4706965-2 (Version None)
Quarter: 2005Q3

REPORT INFORMATION
  Report Type: 
  Country: None (occurrence: None)
  Receive Date: 20050701
  Receipt Date: 20050616
  Transmission Date: 20060218
  Serious: Yes (Other)
  Sender: FDA-Public Use
  Company Number: A-US2005-09819

PATIENT
  Age: 78 Year
  Sex: Female
  Weight: 98 kg

DRUGS (18)
  1. TRACLEER [Suspect]
     Indication: PULMONARY HYPERTENSION
     Dosage: 62.5 MG, BID, ORAL
     Route: 048
     Dates: start: 20050412, end: 20050426
  2. NITRO-DUR [Concomitant]
  3. MIRALAX [Concomitant]
  4. COUMADIN [Concomitant]
  5. HUMALOG [Concomitant]
  6. SIMETHICONE (DIMETICONE, ACTIVATED) [Concomitant]
  7. AMBIEN [Concomitant]
  8. METAMUCIL-2 [Concomitant]
  9. RHINOCORT [Concomitant]
  10. LASIX [Concomitant]
  11. K-DUR 10 [Concomitant]
  12. VASOTEC [Concomitant]
  13. BISACODYL (BISACODYL) [Concomitant]
  14. BETAGAN [Concomitant]
  15. OXYCONTIN [Concomitant]
  16. PROTONIX [Concomitant]
  17. ALBUTEROL [Concomitant]
  18. ACETAMINOPHEN [Concomitant]

REACTIONS (7)
  - ASTHENIA [None]
  - DECREASED APPETITE [None]
  - FATIGUE [None]
  - HEADACHE [None]
  - MALAISE [None]
  - NAUSEA [None]
  - OEDEMA [None]
